FAERS Safety Report 10725133 (Version 2)
Quarter: 2015Q1

REPORT INFORMATION
  Report Type: Spontaneous
  Country: US (occurrence: US)
  Receive Date: 20150120
  Receipt Date: 20150129
  Transmission Date: 20150721
  Serious: Yes (Other)
  Sender: FDA-Public Use
  Company Number: US-BIOMARINAP-US-2015-105266

PATIENT
  Age: 1 Year
  Sex: Male
  Weight: 11.9 kg

DRUGS (1)
  1. KUVAN [Suspect]
     Active Substance: SAPROPTERIN DIHYDROCHLORIDE
     Indication: PHENYLKETONURIA
     Dosage: 200 MG, QD
     Route: 048
     Dates: start: 20141031

REACTIONS (2)
  - Bronchitis [Not Recovered/Not Resolved]
  - Croup infectious [Not Recovered/Not Resolved]

NARRATIVE: CASE EVENT DATE: 20150115
